FAERS Safety Report 6164125-5 (Version None)
Quarter: 2009Q2

REPORT INFORMATION
  Report Type: 
  Country: None (occurrence: None)
  Receive Date: 20090422
  Receipt Date: 20090416
  Transmission Date: 20091009
  Serious: Yes (Other)
  Sender: FDA-Public Use
  Company Number: B0571102A

PATIENT
  Sex: Female

DRUGS (6)
  1. VENTOLIN [Suspect]
     Indication: ASTHMA
     Route: 055
     Dates: start: 20071127
  2. DEMETRIN [Suspect]
     Indication: PERSONALITY DISORDER
     Route: 048
  3. SERTRALINE HCL [Suspect]
     Indication: PERSONALITY DISORDER
     Route: 048
     Dates: start: 20071127
  4. TRITTICO [Suspect]
     Indication: PERSONALITY DISORDER
     Route: 048
     Dates: start: 20070127
  5. SEROQUEL [Suspect]
     Indication: PERSONALITY DISORDER
     Route: 048
     Dates: start: 20071127
  6. DAFALGAN [Concomitant]
     Indication: HEADACHE
     Route: 048

REACTIONS (2)
  - ABORTION INDUCED [None]
  - DRUG EXPOSURE DURING PREGNANCY [None]
